FAERS Safety Report 8076628-7 (Version None)
Quarter: 2012Q1

REPORT INFORMATION
  Report Type: 
  Country: None (occurrence: None)
  Receive Date: 20120127
  Receipt Date: 20120119
  Transmission Date: 20120608
  Serious: Yes (Other)
  Sender: FDA-Public Use
  Company Number: US-BAYER-2011-074933

PATIENT
  Age: 29 Year
  Sex: Female
  Weight: 152.38 kg

DRUGS (3)
  1. YAZ [Suspect]
     Dosage: UNK
     Dates: start: 20040201, end: 20100901
  2. YASMIN [Suspect]
     Dosage: UNK
     Dates: start: 20040201, end: 20100901
  3. DROSPIRENONE AND ETHINYL ESTRADIOL [Suspect]
     Dosage: UNK
     Dates: start: 20040201, end: 20100901

REACTIONS (3)
  - GALLBLADDER INJURY [None]
  - INJURY [None]
  - PAIN [None]
